FAERS Safety Report 14573749 (Version 1)
Quarter: 2018Q1

REPORT INFORMATION
  Report Type: Spontaneous
  Country: JP (occurrence: JP)
  Receive Date: 20180226
  Receipt Date: 20180226
  Transmission Date: 20180509
  Serious: Yes (Hospitalization, Other)
  Sender: FDA-Public Use
  Company Number: JP-PFIZER INC-2018071710

PATIENT
  Age: 73 Year
  Sex: Female
  Weight: 53 kg

DRUGS (13)
  1. HALCION [Suspect]
     Active Substance: TRIAZOLAM
     Dosage: UNK, DAILY (MORE THAN 10MG)
  2. PRAVASTATIN NA AMEL [Concomitant]
     Dosage: UNK
     Route: 048
     Dates: start: 201501
  3. LANSOPRAZOLE. [Concomitant]
     Active Substance: LANSOPRAZOLE
     Dosage: UNK
     Route: 048
     Dates: start: 201501
  4. SOLANAX [Concomitant]
     Active Substance: ALPRAZOLAM
     Dosage: UNK
  5. VIVIANT [Concomitant]
     Active Substance: BAZEDOXIFENE
     Dosage: UNK
     Route: 048
     Dates: start: 201501
  6. ACOFIDE [Concomitant]
     Active Substance: ACOTIAMIDE HYDROCHLORIDE
     Dosage: UNK
     Route: 048
     Dates: start: 201501
  7. AMOBAN [Concomitant]
     Active Substance: ZOPICLONE
     Dosage: UNK
  8. MAGMITT [Concomitant]
     Active Substance: MAGNESIUM OXIDE
     Dosage: UNK
     Route: 048
     Dates: start: 201501
  9. METOCLOPRAMIDE TSURUHARA [Concomitant]
     Dosage: UNK
     Route: 048
     Dates: start: 201501
  10. HALCION [Suspect]
     Active Substance: TRIAZOLAM
     Indication: INSOMNIA
     Dosage: 0.5 MG, DAILY
     Route: 048
     Dates: end: 201710
  11. LEXAPRO [Concomitant]
     Active Substance: ESCITALOPRAM OXALATE
     Dosage: UNK
  12. MYSLEE [Suspect]
     Active Substance: ZOLPIDEM TARTRATE
     Indication: INSOMNIA
     Dosage: 10 MG, DAILY
     Route: 048
     Dates: end: 201710
  13. ETIZOLAM [Concomitant]
     Active Substance: ETIZOLAM
     Dosage: 1 MG, AS NEEDED
     Route: 048
     Dates: start: 201501

REACTIONS (13)
  - Disease recurrence [Recovering/Resolving]
  - Heat illness [Unknown]
  - Anxiety [Unknown]
  - Condition aggravated [Recovering/Resolving]
  - Intentional overdose [Unknown]
  - Suicide attempt [Recovering/Resolving]
  - Feeling abnormal [Unknown]
  - Depression [Recovering/Resolving]
  - Depression [Recovering/Resolving]
  - Nausea [Unknown]
  - Hyperventilation [Unknown]
  - Abdominal discomfort [Recovered/Resolved]
  - Gastrointestinal disorder [Recovered/Resolved]

NARRATIVE: CASE EVENT DATE: 201707
